FAERS Safety Report 12725197 (Version 1)
Quarter: 2016Q3

REPORT INFORMATION
  Report Type: Spontaneous
  Country: US (occurrence: US)
  Receive Date: 20160905
  Receipt Date: 20160905
  Transmission Date: 20161109
  Serious: Yes (Disabling)
  Sender: FDA-Public Use
  Company Number: None

PATIENT
  Age: 68 Year
  Sex: Female
  Weight: 90 kg

DRUGS (9)
  1. BABY ASPIRIN [Concomitant]
     Active Substance: ASPIRIN
  2. LEVOTHYROXINE. [Concomitant]
     Active Substance: LEVOTHYROXINE
  3. POTASSIUM [Concomitant]
     Active Substance: POTASSIUM
  4. ATENOLOL/CHLORTH [Concomitant]
     Active Substance: ATENOLOL\CHLORTHALIDONE
  5. SIMVASTTIN [Concomitant]
  6. D MANNOSE [Concomitant]
  7. FISH OIL [Concomitant]
     Active Substance: FISH OIL
  8. CIPRO [Suspect]
     Active Substance: CIPROFLOXACIN HYDROCHLORIDE
     Indication: CYSTITIS
     Route: 048
  9. MELODICAM [Concomitant]

REACTIONS (1)
  - Tendon pain [None]

NARRATIVE: CASE EVENT DATE: 20160101
